FAERS Safety Report 16974263 (Version 2)
Quarter: 2019Q4

REPORT INFORMATION
  Report Type: Report from Study
  Country: CO (occurrence: CO)
  Receive Date: 20191030
  Receipt Date: 20191112
  Transmission Date: 20200122
  Serious: Yes (Other)
  Sender: FDA-Public Use
  Company Number: NVSC2019CO018251

PATIENT
  Sex: Female
  Weight: 53 kg

DRUGS (3)
  1. ACETAMINOPHEN. [Concomitant]
     Active Substance: ACETAMINOPHEN
     Indication: PAIN IN EXTREMITY
  2. KISQALI [Suspect]
     Active Substance: RIBOCICLIB
     Indication: BREAST CANCER METASTATIC
     Dosage: 600 MG, QD
     Route: 048
     Dates: start: 20190930
  3. ACETAMINOPHEN. [Concomitant]
     Active Substance: ACETAMINOPHEN
     Indication: HEADACHE
     Dosage: UNK
     Route: 065

REACTIONS (8)
  - Breast fibrosis [Unknown]
  - Abdominal pain upper [Unknown]
  - Blindness [Unknown]
  - Central nervous system lesion [Unknown]
  - Nausea [Unknown]
  - Spinal osteoarthritis [Unknown]
  - Electrocardiogram T wave abnormal [Unknown]
  - Osteoarthritis [Unknown]
